FAERS Safety Report 7132483-0 (Version None)
Quarter: 2010Q4

REPORT INFORMATION
  Report Type: 
  Country: None (occurrence: None)
  Receive Date: 20101202
  Receipt Date: 20101109
  Transmission Date: 20110411
  Serious: No
  Sender: FDA-Public Use
  Company Number: TR-ROCHE-744186

PATIENT
  Age: 49 Year
  Weight: 68 kg

DRUGS (3)
  1. MIRCERA [Suspect]
     Route: 065
     Dates: start: 20101006
  2. CARNITEN [Concomitant]
     Route: 042
     Dates: start: 20101006
  3. BEMIKS [Concomitant]
     Route: 048

REACTIONS (2)
  - FISTULA [None]
  - THROMBOSIS [None]
